FAERS Safety Report 6633675-7 (Version None)
Quarter: 2010Q1

REPORT INFORMATION
  Report Type: 
  Country: None (occurrence: None)
  Receive Date: 20100313
  Receipt Date: 20100302
  Transmission Date: 20100710
  Serious: Yes (Hospitalization)
  Sender: FDA-Public Use
  Company Number: IT-ABBOTT-09P-083-0589052-00

PATIENT
  Age: 44 Year
  Sex: Male

DRUGS (10)
  1. RITONAVIR SOFT GELATIN CAPSULES [Suspect]
     Indication: HIV INFECTION
     Route: 048
     Dates: start: 20050921, end: 20080815
  2. RITONAVIR SOFT GELATIN CAPSULES [Suspect]
     Route: 048
     Dates: start: 20080816
  3. TENOFOVIR DISOPROXIL FUMARATE [Suspect]
     Indication: HIV INFECTION
     Route: 048
     Dates: start: 20030626, end: 20080930
  4. STAVUDINE [Suspect]
     Indication: HIV INFECTION
     Route: 048
     Dates: start: 20000404, end: 20080815
  5. STAVUDINE [Suspect]
     Route: 048
     Dates: start: 20080816
  6. DARUNAVIR [Suspect]
     Indication: HIV INFECTION
     Route: 048
     Dates: start: 20060906, end: 20080815
  7. DARUNAVIR [Suspect]
     Route: 048
     Dates: start: 20080816
  8. TAB MK-0518 [Suspect]
     Indication: HIV INFECTION
     Route: 048
     Dates: start: 20060906
  9. EMTRICITABINE/TENOFOVIR DISOPROXIL FUMARATE [Suspect]
     Indication: HIV INFECTION
     Route: 048
     Dates: start: 20060405
  10. BLINDED THERAPY [Suspect]
     Indication: HIV INFECTION
     Dates: start: 20060405, end: 20060905

REACTIONS (1)
  - DIFFUSE LARGE B-CELL LYMPHOMA [None]
